FAERS Safety Report 6938887-0 (Version None)
Quarter: 2010Q3

REPORT INFORMATION
  Report Type: 
  Country: None (occurrence: None)
  Receive Date: 20100824
  Receipt Date: 20100816
  Transmission Date: 20110219
  Serious: Yes (Hospitalization)
  Sender: FDA-Public Use
  Company Number: A0872368A

PATIENT
  Age: 72 Year
  Sex: Male

DRUGS (16)
  1. VOTRIENT [Suspect]
     Dosage: 800MG PER DAY
     Route: 048
     Dates: start: 20100602, end: 20100101
  2. ATENOLOL [Concomitant]
  3. WARFARIN [Concomitant]
  4. ZOCOR [Concomitant]
  5. TRICOR [Concomitant]
  6. SIMVASTATIN [Concomitant]
  7. AMLODIPINE [Concomitant]
  8. NEXIUM [Concomitant]
  9. NORVASC [Concomitant]
  10. HYDROCHLOROTHIAZIDE [Concomitant]
  11. LESITIN [Concomitant]
  12. FISH OIL [Concomitant]
  13. MULTIVITAMIN [Concomitant]
  14. MAGNESIUM [Concomitant]
  15. ASCORBIC ACID [Concomitant]
  16. ACETAMINOPHEN [Concomitant]

REACTIONS (12)
  - AGEUSIA [None]
  - APHONIA [None]
  - BLOOD TRIGLYCERIDES INCREASED [None]
  - DIZZINESS [None]
  - DYSGEUSIA [None]
  - FATIGUE [None]
  - HAEMORRHAGE URINARY TRACT [None]
  - INCREASED APPETITE [None]
  - NAIL DISORDER [None]
  - NEOPLASM PROGRESSION [None]
  - RENAL CANCER [None]
  - STOMATITIS [None]
